FAERS Safety Report 5945925-0 (Version None)
Quarter: 2008Q4

REPORT INFORMATION
  Report Type: 
  Country: None (occurrence: None)
  Receive Date: 20081110
  Receipt Date: 20081028
  Transmission Date: 20090506
  Serious: Yes (Hospitalization)
  Sender: FDA-Public Use
  Company Number: GB-ROCHE-594305

PATIENT
  Sex: Male
  Weight: 125.7 kg

DRUGS (4)
  1. ORLISTAT [Suspect]
     Indication: OBESITY
     Route: 048
     Dates: start: 20080623, end: 20080901
  2. SIMVASTATIN [Concomitant]
     Dosage: START DATE: YEARS AGO
     Route: 048
  3. DOMPERIDONE [Concomitant]
     Indication: HERNIA
     Dosage: START DATE: YEARS AGO.
     Route: 048
  4. OMEPRAZOLE [Concomitant]
     Indication: HERNIA
     Dosage: START DATE: YEARS AGO
     Route: 048

REACTIONS (1)
  - FEELING ABNORMAL [None]
